FAERS Safety Report 7626332-1 (Version None)
Quarter: 2011Q3

REPORT INFORMATION
  Report Type: 
  Country: None (occurrence: None)
  Receive Date: 20110721
  Receipt Date: 20110715
  Transmission Date: 20111222
  Serious: Yes (Death, Hospitalization, Other)
  Sender: FDA-Public Use
  Company Number: PHHY2011US64111

PATIENT
  Sex: Male

DRUGS (1)
  1. EXJADE [Suspect]
     Dosage: UNK
     Dates: start: 20080101

REACTIONS (6)
  - STAPHYLOCOCCAL INFECTION [None]
  - LEUKAEMIA [None]
  - SKIN DISCOLOURATION [None]
  - ACUTE FEBRILE NEUTROPHILIC DERMATOSIS [None]
  - BLOOD BLISTER [None]
  - SWELLING [None]
